FAERS Safety Report 22371959 (Version 1)
Quarter: 2023Q2

REPORT INFORMATION
  Report Type: Spontaneous
  Country: US (occurrence: US)
  Receive Date: 20230526
  Receipt Date: 20230526
  Transmission Date: 20230721
  Serious: No
  Sender: FDA-Public Use
  Company Number: US-SA-SAC20230524000591

PATIENT
  Sex: Female

DRUGS (1)
  1. DUPIXENT [Suspect]
     Active Substance: DUPILUMAB
     Dosage: 300MG, FREQUENCY: OTHER
     Route: 058

REACTIONS (7)
  - Ear infection [Unknown]
  - Nasal congestion [Unknown]
  - Eyelid exfoliation [Unknown]
  - Eyelid rash [Unknown]
  - Eyelid thickening [Unknown]
  - Rash [Unknown]
  - Therapeutic response decreased [Unknown]
